FAERS Safety Report 13937406 (Version 1)
Quarter: 2017Q3

REPORT INFORMATION
  Report Type: Report from Study
  Country: US (occurrence: US)
  Receive Date: 20170905
  Receipt Date: 20170905
  Transmission Date: 20171127
  Serious: Yes (Hospitalization, Other)
  Sender: FDA-Public Use
  Company Number: US-GILEAD-2017-0291375

PATIENT
  Age: 39 Year
  Sex: Female

DRUGS (1)
  1. ELVITEGRAVIR/EMTRICITABINE/TENOFOVIR DF/COBICISTAT [Suspect]
     Active Substance: COBICISTAT\ELVITEGRAVIR\EMTRICITABINE\TENOFOVIR
     Indication: HIV INFECTION
     Dosage: 800 MG, UNK
     Route: 048
     Dates: start: 2014, end: 201702

REACTIONS (4)
  - Oxygen saturation decreased [Unknown]
  - Pneumocystis jirovecii pneumonia [Unknown]
  - T-lymphocyte count decreased [Unknown]
  - Drug dose omission [Unknown]
